FAERS Safety Report 9283680 (Version 2)
Quarter: 2013Q2

REPORT INFORMATION
  Report Type: Spontaneous
  Country: US (occurrence: US)
  Receive Date: 20130510
  Receipt Date: 20130610
  Transmission Date: 20140414
  Serious: Yes (Death, Hospitalization)
  Sender: FDA-Public Use
  Company Number: US-GLAXOSMITHKLINE-A1022222A

PATIENT
  Age: 49 Year
  Sex: Male

DRUGS (1)
  1. FLOLAN [Suspect]
     Indication: PULMONARY ARTERIAL HYPERTENSION
     Dosage: 50NGKM CONTINUOUS
     Route: 042
     Dates: start: 20061013

REACTIONS (10)
  - Renal failure [Fatal]
  - Sepsis [Fatal]
  - Fall [Unknown]
  - Muscle strain [Unknown]
  - Malaise [Unknown]
  - Haemorrhage [Unknown]
  - Muscle rupture [Unknown]
  - Thrombocytopenia [Unknown]
  - Anaemia [Unknown]
  - Malaise [Unknown]
